FAERS Safety Report 21746681 (Version 1)
Quarter: 2022Q4

REPORT INFORMATION
  Report Type: Spontaneous
  Country: US (occurrence: None)
  Receive Date: 20221216
  Receipt Date: 20221216
  Transmission Date: 20230112
  Serious: Yes (Hospitalization)
  Sender: FDA-Public Use
  Company Number: None

PATIENT
  Age: 19 Year
  Sex: Female
  Weight: 58.38 kg

DRUGS (4)
  1. WELIREG [Suspect]
     Active Substance: BELZUTIFAN
     Indication: Haemangioma
     Dosage: FREQUENCY : DAILY;?
     Route: 048
  2. CYMBALTA [Concomitant]
  3. TRAZODONE HCI [Concomitant]
  4. VISTARIL [Concomitant]

REACTIONS (1)
  - Hospitalisation [None]
